FAERS Safety Report 12781539 (Version 1)
Quarter: 2016Q3

REPORT INFORMATION
  Report Type: Spontaneous
  Country: US (occurrence: US)
  Receive Date: 20160926
  Receipt Date: 20160926
  Transmission Date: 20161109
  Serious: No
  Sender: FDA-Public Use
  Company Number: US-ALLERGAN-1654472US

PATIENT
  Age: 66 Year
  Sex: Female

DRUGS (2)
  1. CARAFATE [Suspect]
     Active Substance: SUCRALFATE
     Indication: GASTRITIS
     Dosage: 10 ML, TID
     Route: 048
     Dates: start: 20160417, end: 20160418
  2. CARAFATE [Suspect]
     Active Substance: SUCRALFATE
     Indication: OESOPHAGEAL ACHALASIA

REACTIONS (3)
  - Hypersensitivity [Unknown]
  - Headache [Unknown]
  - Off label use [Unknown]

NARRATIVE: CASE EVENT DATE: 20160417
